FAERS Safety Report 17941260 (Version 3)
Quarter: 2020Q3

REPORT INFORMATION
  Report Type: Report from Study
  Country: US (occurrence: US)
  Receive Date: 20200624
  Receipt Date: 20200730
  Transmission Date: 20201103
  Serious: Yes (Other)
  Sender: FDA-Public Use
  Company Number: NVSC2020US176847

PATIENT
  Sex: Male

DRUGS (1)
  1. COSENTYX [Suspect]
     Active Substance: SECUKINUMAB
     Indication: PSORIATIC ARTHROPATHY
     Dosage: UNK
     Route: 065
     Dates: start: 20200519

REACTIONS (5)
  - Psoriatic arthropathy [Unknown]
  - Muscle spasms [Unknown]
  - Injection site mass [Unknown]
  - Pain in extremity [Unknown]
  - Drug ineffective [Unknown]
